FAERS Safety Report 6998888-3 (Version None)
Quarter: 2010Q3

REPORT INFORMATION
  Report Type: 
  Country: None (occurrence: None)
  Receive Date: 20100920
  Receipt Date: 20090917
  Transmission Date: 20110219
  Serious: No
  Sender: FDA-Public Use
  Company Number: US-ASTRAZENECA-2009SE13971

PATIENT
  Age: 357 Month
  Sex: Female
  Weight: 59 kg

DRUGS (18)
  1. SEROQUEL [Suspect]
     Indication: BIPOLAR I DISORDER
     Route: 048
     Dates: start: 20050901, end: 20050101
  2. SEROQUEL [Suspect]
     Indication: SLEEP DISORDER
     Route: 048
     Dates: start: 20050901, end: 20050101
  3. SEROQUEL [Suspect]
     Route: 048
  4. SEROQUEL [Suspect]
     Route: 048
  5. SEROQUEL [Suspect]
     Route: 048
  6. SEROQUEL [Suspect]
     Route: 048
  7. SEROQUEL [Suspect]
     Route: 048
  8. SEROQUEL [Suspect]
     Route: 048
  9. SEROQUEL [Suspect]
     Route: 048
     Dates: end: 20090901
  10. SEROQUEL [Suspect]
     Route: 048
     Dates: end: 20090901
  11. SEROQUEL [Suspect]
     Route: 048
     Dates: start: 20090901
  12. SEROQUEL [Suspect]
     Route: 048
     Dates: start: 20090901
  13. SEROQUEL [Suspect]
     Route: 048
  14. SEROQUEL [Suspect]
     Route: 048
  15. SEROQUEL [Suspect]
     Route: 048
  16. SEROQUEL [Suspect]
     Route: 048
  17. CYMBALTA [Concomitant]
  18. AMBIEN [Concomitant]

REACTIONS (5)
  - DRUG TOLERANCE INCREASED [None]
  - DYSKINESIA [None]
  - INCREASED APPETITE [None]
  - SOMNOLENCE [None]
  - WEIGHT INCREASED [None]
